FAERS Safety Report 7241464-8 (Version None)
Quarter: 2011Q1

REPORT INFORMATION
  Report Type: 
  Country: None (occurrence: None)
  Receive Date: 20110124
  Receipt Date: 20110112
  Transmission Date: 20110831
  Serious: Yes (Other)
  Sender: FDA-Public Use
  Company Number: JP-SANOFI-AVENTIS-2011SA003815

PATIENT
  Age: 49 Year
  Sex: Male

DRUGS (20)
  1. ELPLAT [Suspect]
     Route: 042
     Dates: start: 20100104, end: 20100104
  2. ELPLAT [Suspect]
     Route: 042
     Dates: start: 20090210, end: 20090210
  3. 5-FU [Suspect]
     Route: 041
     Dates: start: 20080922, end: 20080922
  4. 5-FU [Suspect]
     Route: 041
     Dates: start: 20100104, end: 20100104
  5. AVASTIN [Concomitant]
     Route: 041
     Dates: start: 20090210, end: 20090210
  6. ELPLAT [Suspect]
     Route: 042
     Dates: start: 20081020, end: 20081020
  7. 5-FU [Suspect]
     Route: 041
     Dates: start: 20081020, end: 20081020
  8. 5-FU [Suspect]
     Route: 040
     Dates: start: 20100104, end: 20100104
  9. AVASTIN [Concomitant]
     Indication: COLON CANCER
     Route: 041
     Dates: start: 20081118, end: 20081118
  10. DEXAMETHASONE SODIUM PHOSPHATE [Concomitant]
     Indication: PREMEDICATION
     Route: 041
     Dates: start: 20080922, end: 20100104
  11. ELPLAT [Suspect]
     Indication: COLON CANCER
     Route: 042
     Dates: start: 20080922, end: 20080922
  12. 5-FU [Suspect]
     Route: 040
     Dates: start: 20080521, end: 20080521
  13. 5-FU [Suspect]
     Route: 040
     Dates: start: 20090804, end: 20090804
  14. GRANISETRON HCL [Concomitant]
     Indication: PREMEDICATION
     Route: 041
     Dates: start: 20080922, end: 20100104
  15. 5-FU [Suspect]
     Route: 041
     Dates: start: 20090804, end: 20090804
  16. 5-FU [Suspect]
     Indication: COLON CANCER
     Route: 040
     Dates: start: 20080922, end: 20080922
  17. 5-FU [Suspect]
     Route: 041
     Dates: start: 20080521, end: 20080521
  18. DEXAMETHASONE [Concomitant]
     Indication: PROPHYLAXIS
     Route: 048
     Dates: start: 20080923, end: 20100106
  19. ELPLAT [Suspect]
     Route: 042
     Dates: start: 20090804, end: 20090804
  20. 5-FU [Suspect]
     Route: 040
     Dates: start: 20081020, end: 20081020

REACTIONS (2)
  - LIVER DISORDER [None]
  - PLATELET COUNT DECREASED [None]
